FAERS Safety Report 12714622 (Version 2)
Quarter: 2016Q4

REPORT INFORMATION
  Report Type: Spontaneous
  Country: US (occurrence: US)
  Receive Date: 20160905
  Receipt Date: 20161122
  Transmission Date: 20170207
  Serious: No
  Sender: FDA-Public Use
  Company Number: US-009507513-1609USA000322

PATIENT
  Age: 35 Year
  Sex: Female
  Weight: 86.62 kg

DRUGS (2)
  1. NEXPLANON [Suspect]
     Active Substance: ETONOGESTREL
     Indication: MENSTRUAL CYCLE MANAGEMENT
  2. NEXPLANON [Suspect]
     Active Substance: ETONOGESTREL
     Indication: CONTRACEPTION
     Dosage: ONE ROD / ONCE PER THREE YEARS; FREQUENCY: CONTINUOUS
     Route: 059
     Dates: start: 20150626, end: 20160829

REACTIONS (9)
  - Mobility decreased [Unknown]
  - Implant site erythema [Unknown]
  - Device expulsion [Recovered/Resolved]
  - Implant site erosion [Recovered/Resolved]
  - Pain in extremity [Unknown]
  - Implant site irritation [Unknown]
  - Scab [Unknown]
  - Neuralgia [Recovered/Resolved]
  - Product use issue [Unknown]

NARRATIVE: CASE EVENT DATE: 2015
